FAERS Safety Report 6078968-X (Version None)
Quarter: 2009Q1

REPORT INFORMATION
  Report Type: 
  Country: None (occurrence: None)
  Receive Date: 20090216
  Receipt Date: 20090202
  Transmission Date: 20090719
  Serious: Yes (Hospitalization, Other)
  Sender: FDA-Public Use
  Company Number: US-ELI_LILLY_AND_COMPANY-US200902000231

PATIENT
  Sex: Female

DRUGS (6)
  1. FORTEO [Suspect]
     Dosage: 20 UG, DAILY (1/D)
     Dates: start: 20050101, end: 20070101
  2. COSOPT [Concomitant]
  3. KONSYL [Concomitant]
     Indication: SUPPLEMENTATION THERAPY
  4. CALCIUM WITH VITAMIN D [Concomitant]
  5. VITAMIN D [Concomitant]
  6. PYRIDIUM [Concomitant]
     Dosage: UNK, AS NEEDED

REACTIONS (8)
  - BONE DENSITY DECREASED [None]
  - BREAST CANCER IN SITU [None]
  - FALL [None]
  - FOOT FRACTURE [None]
  - GLAUCOMA [None]
  - INJURY [None]
  - TREATMENT FAILURE [None]
  - UTERINE LEIOMYOMA [None]
